FAERS Safety Report 8982971 (Version 1)
Quarter: 2012Q4

REPORT INFORMATION
  Report Type: 
  Country: MX (occurrence: MX)
  Receive Date: 20121224
  Receipt Date: 20121224
  Transmission Date: 20130627
  Serious: Yes (Other)
  Sender: FDA-Public Use
  Company Number: PHHY2012MX119209

PATIENT
  Age: 43 Year
  Sex: Female

DRUGS (3)
  1. MIFLONIDE [Suspect]
     Indication: ASTHMA
     Dosage: 400 mg UNK
  2. FORADIL [Suspect]
  3. COMBIVENT [Concomitant]

REACTIONS (3)
  - Abdominal hernia [Recovered/Resolved]
  - Asphyxia [Unknown]
  - Fatigue [Unknown]
